FAERS Safety Report 9723828 (Version 1)
Quarter: 2013Q4

REPORT INFORMATION
  Report Type: Spontaneous
  Country: US (occurrence: US)
  Receive Date: 20131202
  Receipt Date: 20131202
  Transmission Date: 20140711
  Serious: No
  Sender: FDA-Public Use
  Company Number: US-AMGEN-USASP2013078962

PATIENT
  Age: 58 Year
  Sex: Male

DRUGS (5)
  1. ENBREL [Suspect]
     Indication: RHEUMATOID ARTHRITIS
     Dosage: 50 MG, QWK
     Route: 065
  2. ARAVA [Concomitant]
     Dosage: UNK
  3. VOLTAREN                           /00372301/ [Concomitant]
     Dosage: UNK
  4. FOLIC ACID [Concomitant]
     Dosage: UNK
  5. CLOBETASOL [Concomitant]
     Dosage: UNK

REACTIONS (1)
  - Injection site reaction [Unknown]
